FAERS Safety Report 4571139-5 (Version None)
Quarter: 2005Q1

REPORT INFORMATION
  Report Type: 
  Country: None (occurrence: None)
  Receive Date: 20050202
  Receipt Date: 20050121
  Transmission Date: 20050727
  Serious: Yes (Life-Threatening)
  Sender: FDA-Public Use
  Company Number: 2004093960

PATIENT
  Sex: Female

DRUGS (5)
  1. ALDACTONE [Suspect]
     Indication: MALIGNANT HYPERTENSION
     Dosage: 50 MG (25 MG, DAILY), UNKNOWN
     Dates: start: 20040301
  2. METHYLDOPA [Concomitant]
  3. PRAZOSIN HYDROCHLORIDE (PRAZOSIN HYDROCHLORIDE) [Concomitant]
  4. TEMAZEPAM [Concomitant]
  5. CLOPIDOGREL BISULFATE [Concomitant]

REACTIONS (5)
  - BLOOD POTASSIUM INCREASED [None]
  - DENTAL OPERATION [None]
  - DRY MOUTH [None]
  - MALIGNANT HYPERTENSION [None]
  - PAIN [None]
